FAERS Safety Report 15619583 (Version 1)
Quarter: 2018Q4

REPORT INFORMATION
  Report Type: Report from Study
  Country: None (occurrence: US)
  Receive Date: 20181115
  Receipt Date: 20181115
  Transmission Date: 20190205
  Serious: Yes (Other)
  Sender: FDA-Public Use
  Company Number: US-ABBVIE-18S-163-2550964-00

PATIENT
  Age: 80 Year
  Sex: Male

DRUGS (2)
  1. SYNTHROID [Suspect]
     Active Substance: LEVOTHYROXINE SODIUM
     Indication: PRODUCT USED FOR UNKNOWN INDICATION
     Route: 048
  2. CREON [Suspect]
     Active Substance: PANCRELIPASE AMYLASE\PANCRELIPASE LIPASE\PANCRELIPASE PROTEASE
     Indication: PRODUCT USED FOR UNKNOWN INDICATION
     Route: 048

REACTIONS (17)
  - Thyroidectomy [Unknown]
  - Oedema [Unknown]
  - Pollakiuria [Unknown]
  - Immune thrombocytopenic purpura [Unknown]
  - Hypertension [Unknown]
  - Diarrhoea [Unknown]
  - Metastatic renal cell carcinoma [Unknown]
  - Metastatic neoplasm [Unknown]
  - Malignant melanoma [Unknown]
  - Coronary artery disease [Unknown]
  - Sinus node dysfunction [Unknown]
  - Hyperlipidaemia [Unknown]
  - Asthenia [Unknown]
  - Pancreaticoduodenectomy [Unknown]
  - Thyroid mass [Unknown]
  - Renal cancer [Unknown]
  - Atrial fibrillation [Unknown]

NARRATIVE: CASE EVENT DATE: 20120910
